FAERS Safety Report 6928949-6 (Version None)
Quarter: 2010Q3

REPORT INFORMATION
  Report Type: 
  Country: None (occurrence: None)
  Receive Date: 20100817
  Receipt Date: 20100805
  Transmission Date: 20110219
  Serious: Yes (Death)
  Sender: FDA-Public Use
  Company Number: US-PFIZER INC-2010099353

PATIENT
  Sex: Male
  Weight: 80.726 kg

DRUGS (15)
  1. REVATIO [Suspect]
     Indication: PULMONARY HYPERTENSION
     Dosage: 20 MG, 3X/DAY
     Route: 048
     Dates: start: 20100601
  2. DIGOXIN [Concomitant]
     Dosage: UNK
  3. SPIRONOLACTONE [Concomitant]
     Dosage: UNK
  4. FUROSEMIDE [Concomitant]
     Dosage: UNK
  5. ACETYLSALICYLIC ACID [Concomitant]
     Dosage: UNK
  6. SPIRIVA [Concomitant]
     Dosage: UNK (INHALER)
  7. WARFARIN [Concomitant]
     Dosage: UNK
  8. PROAIR HFA [Concomitant]
     Dosage: UNK, (INHALER) AS NEEDED
  9. ADVAIR DISKUS 100/50 [Concomitant]
     Dosage: UNK
  10. CALCIUM [Concomitant]
     Dosage: UNK
  11. MULTI-VITAMINS [Concomitant]
     Dosage: UNK
  12. PLAVIX [Concomitant]
     Dosage: UNK
  13. TETRACYCLINE [Concomitant]
     Dosage: UNK
  14. LIPITOR [Concomitant]
     Dosage: UNK
  15. LISINOPRIL [Concomitant]
     Dosage: UNK

REACTIONS (1)
  - CARDIAC ARREST [None]
